FAERS Safety Report 23576721 (Version 3)
Quarter: 2024Q2

REPORT INFORMATION
  Report Type: Spontaneous
  Country: US (occurrence: US)
  Receive Date: 20240228
  Receipt Date: 20240401
  Transmission Date: 20240716
  Serious: Yes (Hospitalization)
  Sender: FDA-Public Use
  Company Number: US-PFIZER INC-PV202400027771

PATIENT
  Age: 72 Year
  Sex: Male
  Weight: 94.331 kg

DRUGS (23)
  1. VYNDAMAX [Suspect]
     Active Substance: TAFAMIDIS
     Indication: Amyloidosis
     Dosage: 61 MG, 1X/DAY
     Route: 048
     Dates: start: 20230818
  2. VYNDAMAX [Suspect]
     Active Substance: TAFAMIDIS
     Indication: Cardiac failure
  3. VYNDAMAX [Suspect]
     Active Substance: TAFAMIDIS
     Indication: Cardiac amyloidosis
  4. VYNDAMAX [Suspect]
     Active Substance: TAFAMIDIS
     Indication: Cardiac amyloidosis
  5. METOPROLOL SUCCINATE [Concomitant]
     Active Substance: METOPROLOL SUCCINATE
     Indication: Chronic left ventricular failure
     Dosage: TAKE 1/2 TABLET BY MOUTH DAILY
     Route: 048
     Dates: start: 20221028
  6. METOPROLOL SUCCINATE [Concomitant]
     Active Substance: METOPROLOL SUCCINATE
     Indication: Chronic left ventricular failure
  7. METOPROLOL SUCCINATE [Concomitant]
     Active Substance: METOPROLOL SUCCINATE
     Indication: Essential hypertension
  8. TORSEMIDE [Concomitant]
     Active Substance: TORSEMIDE
     Indication: Chronic left ventricular failure
     Dosage: 20-40 MG DAILY
  9. TORSEMIDE [Concomitant]
     Active Substance: TORSEMIDE
     Indication: Chronic left ventricular failure
     Dosage: 1 OR 2 TABLETS BY MOUTH DAILY AS NEEDED
     Route: 048
     Dates: start: 20220829
  10. TORSEMIDE [Concomitant]
     Active Substance: TORSEMIDE
     Indication: Swelling
  11. LISINOPRIL [Concomitant]
     Active Substance: LISINOPRIL
     Indication: Chronic left ventricular failure
     Dosage: 2.5 MG, DAILY
     Route: 048
     Dates: start: 20221028
  12. LISINOPRIL [Concomitant]
     Active Substance: LISINOPRIL
     Indication: Chronic left ventricular failure
  13. LISINOPRIL [Concomitant]
     Active Substance: LISINOPRIL
     Indication: Essential hypertension
  14. ALBUTEROL SULFATE [Concomitant]
     Active Substance: ALBUTEROL SULFATE
     Dosage: INHALE 1 TO 2 PUFFS EVERY 4 TO 6 HOURS AS NEEDED
     Route: 055
     Dates: start: 20140915
  15. AZATHIOPRINE [Concomitant]
     Active Substance: AZATHIOPRINE
     Dosage: 50 MG, 3X/DAY
     Route: 048
     Dates: start: 20140501
  16. CHLORTHALIDONE [Concomitant]
     Active Substance: CHLORTHALIDONE
     Dosage: 25 MG, DAILY
     Dates: start: 20231106
  17. NEXIUM [Concomitant]
     Active Substance: ESOMEPRAZOLE MAGNESIUM
     Dosage: 40 MG, DAILY
     Route: 048
     Dates: start: 20141024
  18. PREGABALIN [Concomitant]
     Active Substance: PREGABALIN
     Dosage: 150 MG, 2X/DAY
  19. SPIRONOLACTONE [Concomitant]
     Active Substance: SPIRONOLACTONE
     Indication: Chronic left ventricular failure
     Dosage: TAKE ONE TABLET BY MOUTH EVERY OTHER DAY WITH TORSEMIDE
     Route: 048
     Dates: start: 20230705
  20. SPIRONOLACTONE [Concomitant]
     Active Substance: SPIRONOLACTONE
     Indication: Essential hypertension
  21. SPIRONOLACTONE [Concomitant]
     Active Substance: SPIRONOLACTONE
     Indication: Chronic left ventricular failure
  22. TYLENOL PM EXTRA STRENGTH [Concomitant]
     Active Substance: ACETAMINOPHEN\DIPHENHYDRAMINE HYDROCHLORIDE
     Dosage: 500-25 MG ORAL TABLET; AS NEEDED
     Route: 048
     Dates: start: 20221028
  23. WARFARIN SODIUM [Concomitant]
     Active Substance: WARFARIN SODIUM
     Dosage: 5 MG, DAILY
     Route: 048
     Dates: start: 20210915

REACTIONS (3)
  - Neoplasm malignant [Unknown]
  - Back pain [Unknown]
  - Weight fluctuation [Unknown]
